FAERS Safety Report 4597594-2 (Version None)
Quarter: 2005Q1

REPORT INFORMATION
  Report Type: 
  Country: None (occurrence: None)
  Receive Date: 20050228
  Receipt Date: 20050228
  Transmission Date: 20050727
  Serious: Yes (Hospitalization)
  Sender: FDA-Public Use
  Company Number: None

PATIENT
  Sex: Female
  Weight: 59.42 kg

DRUGS (2)
  1. CAPECITABINE [Suspect]
     Indication: RECTAL CANCER
     Dosage: 1200MG/M2  DAILY ORAL
     Route: 048
     Dates: start: 20050110, end: 20050124
  2. IRINOTECAN HCL [Suspect]
     Indication: RECTAL CANCER
     Dosage: 50MG/M2  WEEKLY INTRAVENOUS
     Route: 042
     Dates: start: 20050110, end: 20050117

REACTIONS (6)
  - DEHYDRATION [None]
  - DIARRHOEA [None]
  - DYSPNOEA [None]
  - ENTERITIS [None]
  - HYPOTENSION [None]
  - ORAL INTAKE REDUCED [None]
